FAERS Safety Report 25627554 (Version 1)
Quarter: 2025Q3

REPORT INFORMATION
  Report Type: Spontaneous
  Country: EU (occurrence: EU)
  Receive Date: 20250731
  Receipt Date: 20250731
  Transmission Date: 20251020
  Serious: Yes (Hospitalization)
  Sender: PFIZER
  Company Number: None

PATIENT
  Age: 75 Year
  Sex: Female
  Weight: 64.5 kg

DRUGS (2)
  1. DAPTOMYCIN [Suspect]
     Active Substance: DAPTOMYCIN
     Dosage: 700 MG, ALTERNATE DAY (FREQ:48 H;700 MG/48 H)
     Route: 042
     Dates: start: 20250120, end: 20250211
  2. DAPTOMYCIN [Suspect]
     Active Substance: DAPTOMYCIN
     Dosage: 500 MG, ALTERNATE DAY (FREQ:48 H;)
     Route: 042
     Dates: start: 20250213, end: 20250218

REACTIONS (2)
  - Eosinophilic pneumonia [Recovering/Resolving]
  - Cough [Recovering/Resolving]

NARRATIVE: CASE EVENT DATE: 20250213
